FAERS Safety Report 8318700 (Version 2)
Quarter: 2013Q1

REPORT INFORMATION
  Report Type: Spontaneous
  Country: US (occurrence: US)
  Receive Date: 20120103
  Receipt Date: 20130222
  Transmission Date: 20140127
  Serious: Yes (Life-Threatening, Congenital Anomaly, Other)
  Sender: FDA-Public Use
  Company Number: US-PFIZER INC-2011289532

PATIENT
  Sex: Female

DRUGS (10)
  1. ZOLOFT [Suspect]
     Dosage: UNK
     Route: 064
     Dates: start: 20040412
  2. ORTHO EVRA [Concomitant]
     Dosage: UNK
     Route: 064
  3. PRENATAL VITAMINS [Concomitant]
     Dosage: UNK
     Route: 064
  4. CALNATE [Concomitant]
     Dosage: UNK
     Route: 064
  5. EFFEXOR [Concomitant]
     Dosage: UNK
     Route: 064
  6. PROMETHAZINE [Concomitant]
     Dosage: UNK
     Route: 064
  7. METOCLOPRAMIDE [Concomitant]
     Dosage: UNK
     Route: 064
  8. NITROFURANTOIN [Concomitant]
     Dosage: UNK
     Route: 064
  9. FLUOXETINE [Concomitant]
     Dosage: UNK
     Route: 064
  10. RANITIDINE [Concomitant]
     Dosage: UNK
     Route: 064

REACTIONS (4)
  - Maternal exposure timing unspecified [Unknown]
  - Wolff-Parkinson-White syndrome [Unknown]
  - Congenital anomaly [Unknown]
  - Cardiac disorder [Unknown]
